FAERS Safety Report 9959941 (Version 1)
Quarter: 2014Q1

REPORT INFORMATION
  Report Type: Spontaneous
  Country: US (occurrence: None)
  Receive Date: 20140228
  Receipt Date: 20140228
  Transmission Date: 20141002
  Serious: No
  Sender: FDA-Public Use
  Company Number: None

PATIENT
  Age: 43 Year
  Sex: Male
  Weight: 119.5 kg

DRUGS (1)
  1. SERTRALINE [Suspect]
     Indication: DEPRESSION
     Dosage: MG
     Route: 048
     Dates: start: 20140219, end: 20140222

REACTIONS (4)
  - Pruritus [None]
  - Muscle spasms [None]
  - Throat irritation [None]
  - Anxiety [None]
